FAERS Safety Report 21400907 (Version 1)
Quarter: 2022Q4

REPORT INFORMATION
  Report Type: Report from Study
  Country: US (occurrence: US)
  Receive Date: 20221003
  Receipt Date: 20221003
  Transmission Date: 20230113
  Serious: No
  Sender: FDA-Public Use
  Company Number: US-ABBVIE-4129259

PATIENT
  Sex: Male

DRUGS (3)
  1. SKYRIZI [Suspect]
     Active Substance: RISANKIZUMAB-RZAA
     Indication: Psoriasis
     Route: 058
  2. Pfizer/BioNTech Covid-19 [Concomitant]
     Indication: COVID-19 immunisation
     Dosage: 1 IN 1 ONCE
     Route: 030
  3. Pfizer/BioNTech Covid-19 [Concomitant]
     Indication: COVID-19 immunisation
     Dosage: 1 IN 1 ONCE; BOOSTER DOSE
     Route: 030

REACTIONS (2)
  - COVID-19 [Unknown]
  - Sinusitis [Unknown]
